FAERS Safety Report 7302225-4 (Version None)
Quarter: 2011Q1

REPORT INFORMATION
  Report Type: 
  Country: None (occurrence: None)
  Receive Date: 20110218
  Receipt Date: 20110211
  Transmission Date: 20110831
  Serious: Yes (Hospitalization, Other)
  Sender: FDA-Public Use
  Company Number: PHHO2009DE05457

PATIENT
  Sex: Male

DRUGS (17)
  1. DEXA [Suspect]
     Indication: PROSTATE CANCER
     Dosage: 0.5 MG, QD
  2. PANTOZOL [Concomitant]
  3. DURAGESIC-100 [Concomitant]
  4. LORAZEPAM [Concomitant]
  5. ARCOXIA [Suspect]
     Indication: PROSTATE CANCER
     Dosage: 60 MG, QD
  6. NOVALGIN [Concomitant]
  7. AREDIA [Concomitant]
  8. IOMERON-150 [Concomitant]
  9. SEVREDOL [Concomitant]
  10. LEVOTHYROXINE SODIUM [Concomitant]
  11. HYDROCHLOROTHIAZDE TAB [Concomitant]
  12. FENTANYL [Concomitant]
  13. IRENAT [Concomitant]
  14. ACTOS [Suspect]
     Indication: PROSTATE CANCER
     Dosage: 30 MG, BID
  15. GLEEVEC [Suspect]
     Indication: PROSTATE CANCER
     Dosage: 400 MG, QD
     Dates: start: 20071220, end: 20090816
  16. OVASTAT [Concomitant]
     Indication: PROSTATE CANCER
     Dosage: 250 MG, BID
  17. MOVICOL [Concomitant]

REACTIONS (13)
  - ATRIAL FIBRILLATION [None]
  - TACHYCARDIA [None]
  - ASPHYXIA [None]
  - FEAR [None]
  - OESOPHAGEAL HYPOMOTILITY [None]
  - PALPITATIONS [None]
  - NAUSEA [None]
  - HYPOMAGNESAEMIA [None]
  - VOMITING [None]
  - GENERAL PHYSICAL HEALTH DETERIORATION [None]
  - HYPERTENSION [None]
  - TACHYARRHYTHMIA [None]
  - CHEST PAIN [None]
